FAERS Safety Report 16103951 (Version 1)
Quarter: 2019Q1

REPORT INFORMATION
  Report Type: Spontaneous
  Country: US (occurrence: US)
  Receive Date: 20190322
  Receipt Date: 20190322
  Transmission Date: 20190418
  Serious: No
  Sender: FDA-Public Use
  Company Number: US-HIKMA PHARMACEUTICALS USA INC.-US-H14001-18-08101

PATIENT
  Age: 70 Year
  Sex: Male

DRUGS (1)
  1. FLUTICASONE PROPIONATE. [Suspect]
     Active Substance: FLUTICASONE PROPIONATE
     Indication: NASAL DISCOMFORT
     Dosage: IN THE MORNING OR AS NEEDED
     Route: 045
     Dates: start: 2018

REACTIONS (1)
  - Nasal discomfort [Not Recovered/Not Resolved]
